FAERS Safety Report 6825950-8 (Version None)
Quarter: 2010Q3

REPORT INFORMATION
  Report Type: 
  Country: None (occurrence: None)
  Receive Date: 20100709
  Receipt Date: 20100503
  Transmission Date: 20110219
  Serious: Yes (Death)
  Sender: FDA-Public Use
  Company Number: DE-CELGENEUS-062-50794-10050372

PATIENT
  Age: 68 Year
  Sex: Male

DRUGS (4)
  1. VIDAZA [Suspect]
     Route: 058
     Dates: start: 20070201
  2. VIDAZA [Suspect]
  3. RED BLOOD CELLS [Concomitant]
     Indication: PRODUCT USED FOR UNKNOWN INDICATION
     Route: 065
  4. PLATELETS [Concomitant]
     Indication: PRODUCT USED FOR UNKNOWN INDICATION
     Route: 065

REACTIONS (4)
  - ACUTE MYELOID LEUKAEMIA [None]
  - INJECTION SITE REACTION [None]
  - MYELODYSPLASTIC SYNDROME TRANSFORMATION [None]
  - NAUSEA [None]
